FAERS Safety Report 9913596 (Version 1)
Quarter: 2014Q1

REPORT INFORMATION
  Report Type: Spontaneous
  Country: US (occurrence: None)
  Receive Date: 20140219
  Receipt Date: 20140219
  Transmission Date: 20141002
  Serious: Yes (Hospitalization)
  Sender: FDA-Public Use
  Company Number: None

PATIENT
  Age: 90 Year
  Sex: Male

DRUGS (18)
  1. WARFARIN [Suspect]
     Indication: ATRIAL FIBRILLATION
     Route: 048
  2. ACETAMINOPHEN [Concomitant]
  3. ALBUTEROL [Concomitant]
  4. ASPIRIN [Concomitant]
  5. AZITHROMYCIN [Concomitant]
  6. BICALUTAMIDE [Concomitant]
  7. CEFPODOXIME [Concomitant]
  8. DIGOXIN [Concomitant]
  9. DILTIAZEM [Concomitant]
  10. DOCUSATE [Concomitant]
  11. DONEPEZIL [Concomitant]
  12. ENALAPRIL [Concomitant]
  13. FUROSEMIDE [Concomitant]
  14. GUIFENESIN [Concomitant]
  15. HALOPERIDOL [Concomitant]
  16. METOPROLOL TARTRATE [Concomitant]
  17. TAMSULOXIN [Concomitant]
  18. TRAZODONE [Concomitant]

REACTIONS (4)
  - International normalised ratio increased [None]
  - Upper respiratory tract infection [None]
  - Drug interaction [None]
  - Drug administration error [None]
